FAERS Safety Report 14331436 (Version 12)
Quarter: 2018Q2

REPORT INFORMATION
  Report Type: Spontaneous
  Country: LT (occurrence: LT)
  Receive Date: 20171228
  Receipt Date: 20180529
  Transmission Date: 20180711
  Serious: Yes (Life-Threatening, Other)
  Sender: FDA-Public Use
  Company Number: LT-ALVOGEN-2017-ALVOGEN-094651

PATIENT
  Age: 53 Year
  Sex: Female

DRUGS (14)
  1. TIANEPTINE [Interacting]
     Active Substance: TIANEPTINE
     Indication: PAIN MANAGEMENT
     Dosage: 12.5 MG, DAILY (LONG-TERM USE)
     Route: 048
  2. DEXAMETHASONE. [Interacting]
     Active Substance: DEXAMETHASONE
     Indication: PREMEDICATION
     Dosage: 0.5 MG, TOTAL 4 MG (8 TABLETS), DAILY
     Route: 048
     Dates: start: 2016, end: 2016
  3. TIANEPTINE [Interacting]
     Active Substance: TIANEPTINE
     Indication: DEPRESSION
     Dosage: 12.5 MG, DAILY (LONG-TERM USE)
     Route: 048
  4. CYANOCOBALAMIN. [Interacting]
     Active Substance: CYANOCOBALAMIN
     Indication: PREMEDICATION
     Dosage: 1000 MG, UNK
     Route: 042
  5. APREPITANT. [Interacting]
     Active Substance: APREPITANT
     Indication: PROPHYLAXIS OF NAUSEA AND VOMITING
     Dosage: 125 MG, DAILY
     Route: 048
     Dates: start: 2016, end: 2016
  6. TRAMADOL. [Interacting]
     Active Substance: TRAMADOL
     Indication: PAIN MANAGEMENT
     Dosage: LONG-TERM USE
     Route: 048
  7. MANNITOL. [Interacting]
     Active Substance: MANNITOL
     Indication: TOXICITY TO VARIOUS AGENTS
     Dosage: 1000 ML, DAILY (10 PROC.)
     Route: 042
     Dates: start: 2016, end: 2016
  8. FENTANYL. [Suspect]
     Active Substance: FENTANYL
     Indication: PAIN MANAGEMENT
     Dosage: UNK, DAILY (75 UG/H, LONG-TERM USE) ()
     Route: 061
  9. CISPLATIN. [Interacting]
     Active Substance: CISPLATIN
     Indication: PLEURAL MESOTHELIOMA
     Dosage: 150 MG, DAILY II CYCLE (AFTER 6 PREVIOUS CYCLES OF CISPLATIN AND PEMETREXED),
     Route: 042
     Dates: start: 2016, end: 2016
  10. ONDANSETRON [Interacting]
     Active Substance: ONDANSETRON
     Indication: PROPHYLAXIS OF NAUSEA AND VOMITING
     Dosage: 8 MG, DAILY
     Route: 048
     Dates: start: 2016, end: 2016
  11. ALPRAZOLAM. [Interacting]
     Active Substance: ALPRAZOLAM
     Indication: ANXIETY DISORDER
     Dosage: 0.5 MG, DAILY (LONG-TERM USE)
     Route: 048
  12. BETALOC ZOK [Interacting]
     Active Substance: METOPROLOL SUCCINATE
     Indication: HYPERTENSION
     Dosage: 47.5 MG, DAILY (LONG-TERM USE)
     Route: 048
  13. ANGIOCELL [Interacting]
     Active Substance: SHARK CARTILAGE\SHARK, UNSPECIFIED
     Indication: PRODUCT USED FOR UNKNOWN INDICATION
     Dosage: LIQUID SHARK CARTILAGE EXTRACT
     Route: 048
     Dates: start: 2016
  14. FOLIC ACID. [Interacting]
     Active Substance: FOLIC ACID
     Indication: PREMEDICATION
     Route: 042

REACTIONS (3)
  - Circulatory collapse [Recovered/Resolved]
  - Drug interaction [Recovering/Resolving]
  - Cardio-respiratory arrest [Recovered/Resolved]

NARRATIVE: CASE EVENT DATE: 20160101
